FAERS Safety Report 23023270 (Version 1)
Quarter: 2023Q4

REPORT INFORMATION
  Report Type: Spontaneous
  Country: CA (occurrence: CA)
  Receive Date: 20231003
  Receipt Date: 20231003
  Transmission Date: 20240110
  Serious: Yes (Other)
  Sender: FDA-Public Use
  Company Number: CA-002147023-NVSC2023CA059073

PATIENT
  Age: 38 Year
  Sex: Female

DRUGS (2)
  1. HYRIMOZ [Suspect]
     Active Substance: ADALIMUMAB-ADAZ
     Indication: Psoriasis
     Dosage: 40 MG
     Route: 058
     Dates: start: 20230306
  2. HYRIMOZ [Suspect]
     Active Substance: ADALIMUMAB-ADAZ
     Dosage: 40 MG
     Route: 065
     Dates: start: 20230321

REACTIONS (11)
  - Loss of consciousness [Unknown]
  - Skin discomfort [Unknown]
  - Pain of skin [Unknown]
  - Spinal stenosis [Unknown]
  - Scab [Unknown]
  - Arthropathy [Unknown]
  - Rash [Unknown]
  - Pruritus [Unknown]
  - Insomnia [Unknown]
  - Therapeutic product effect incomplete [Unknown]
  - Drug ineffective [Unknown]
